FAERS Safety Report 12523644 (Version 6)
Quarter: 2017Q1

REPORT INFORMATION
  Report Type: Report from Study
  Country: AU (occurrence: AU)
  Receive Date: 20160704
  Receipt Date: 20170127
  Transmission Date: 20170428
  Serious: Yes (Hospitalization, Other)
  Sender: FDA-Public Use
  Company Number: AU-ROCHE-1777753

PATIENT
  Age: 65 Year
  Sex: Female

DRUGS (11)
  1. LEFLUNOMIDE. [Concomitant]
     Active Substance: LEFLUNOMIDE
     Route: 065
  2. PANADEINE [Concomitant]
     Active Substance: ACETAMINOPHEN\CODEINE PHOSPHATE
     Dosage: 2 TABLETS 3 TIMES A DAY PRN.
     Route: 065
  3. PREDNISOLONE. [Concomitant]
     Active Substance: PREDNISOLONE
     Dosage: 1 TABLET IN THE MORNING
     Route: 065
  4. ROSUVASTATIN. [Concomitant]
     Active Substance: ROSUVASTATIN
     Dosage: 1 TABLET IN THE EVENING
     Route: 065
  5. DIPROSONE [Concomitant]
     Active Substance: BETAMETHASONE DIPROPIONATE
     Dosage: DIPROSONE 0.05% CREAM: 1 APPLICATION TWICE A DAY PRN
     Route: 065
  6. FOLIC ACID. [Concomitant]
     Active Substance: FOLIC ACID
     Route: 065
  7. CLOBAZAM [Concomitant]
     Active Substance: CLOBAZAM
     Dosage: HALF TO 1 TABLET PRN
     Route: 065
  8. MELOXICAM. [Concomitant]
     Active Substance: MELOXICAM
     Dosage: 1 CAPSULE IN THE MORNING WITH MEALS
     Route: 065
  9. RABEPRAZOLE [Concomitant]
     Active Substance: RABEPRAZOLE
     Dosage: 1 TABLET IN THE MORNING
     Route: 065
  10. METHOTREXATE. [Concomitant]
     Active Substance: METHOTREXATE
     Route: 065
  11. ACTEMRA [Suspect]
     Active Substance: TOCILIZUMAB
     Indication: RHEUMATOID ARTHRITIS
     Dosage: ONGOING?80MG/4ML CONCENTRATE FOR INFUSION.
     Route: 042
     Dates: start: 20150528

REACTIONS (8)
  - Ankle fracture [Not Recovered/Not Resolved]
  - Fibula fracture [Unknown]
  - Laryngitis [Not Recovered/Not Resolved]
  - Vitreous haemorrhage [Unknown]
  - Lumbar vertebral fracture [Not Recovered/Not Resolved]
  - Upper respiratory tract infection [Recovering/Resolving]
  - Tendon rupture [Recovering/Resolving]
  - Restless legs syndrome [Unknown]

NARRATIVE: CASE EVENT DATE: 20160701
